APPROVED DRUG PRODUCT: MEDROXYPROGESTERONE ACETATE
Active Ingredient: MEDROXYPROGESTERONE ACETATE
Strength: 150MG/ML
Dosage Form/Route: INJECTABLE;INJECTION
Application: A210761 | Product #001
Applicant: SUN PHARMACEUTICAL INDUSTRIES LTD
Approved: Apr 24, 2019 | RLD: No | RS: No | Type: DISCN